FAERS Safety Report 6414707-8 (Version None)
Quarter: 2009Q4

REPORT INFORMATION
  Report Type: 
  Country: None (occurrence: None)
  Receive Date: 20091026
  Receipt Date: 20091020
  Transmission Date: 20100525
  Serious: Yes (Death, Hospitalization, Other)
  Sender: FDA-Public Use
  Company Number: US-BAXTER-2009BH016359

PATIENT
  Sex: Female

DRUGS (6)
  1. HEPARIN SODIUM INJECTION [Suspect]
     Indication: THROMBOSIS PROPHYLAXIS
     Route: 065
     Dates: start: 20070927, end: 20071002
  2. HEPARIN SODIUM INJECTION [Suspect]
     Indication: DIALYSIS DEVICE INSERTION
     Route: 065
     Dates: start: 20070927, end: 20071002
  3. HEPARIN SODIUM INJECTION [Suspect]
     Route: 065
     Dates: start: 20071005, end: 20071005
  4. HEPARIN SODIUM INJECTION [Suspect]
     Route: 065
     Dates: start: 20071005, end: 20071005
  5. HEPARIN SODIUM INJECTION [Suspect]
     Route: 065
     Dates: start: 20071109, end: 20071101
  6. HEPARIN SODIUM INJECTION [Suspect]
     Route: 065
     Dates: start: 20071109, end: 20071101

REACTIONS (12)
  - CONDITION AGGRAVATED [None]
  - DEATH [None]
  - HEPARIN-INDUCED THROMBOCYTOPENIA [None]
  - HYPOTENSION [None]
  - NAUSEA [None]
  - OEDEMA [None]
  - PLATELET COUNT DECREASED [None]
  - RENAL FAILURE CHRONIC [None]
  - RESPIRATORY ARREST [None]
  - SEPSIS [None]
  - SICK SINUS SYNDROME [None]
  - VOMITING [None]
